FAERS Safety Report 23678879 (Version 1)
Quarter: 2024Q1

REPORT INFORMATION
  Report Type: Spontaneous
  Country: CN (occurrence: CN)
  Receive Date: 20240327
  Receipt Date: 20240327
  Transmission Date: 20240410
  Serious: Yes (Other)
  Sender: FDA-Public Use
  Company Number: CN-Eisai-EC-2024-161972

PATIENT
  Age: 37 Year
  Sex: Female
  Weight: 60 kg

DRUGS (3)
  1. ERIBULIN [Suspect]
     Active Substance: ERIBULIN
     Indication: Breast cancer recurrent
     Dosage: ADMINISTER ONCE WITHIN 7 DAYS
     Route: 042
     Dates: start: 20240227
  2. CAMRELIZUMAB [Suspect]
     Active Substance: CAMRELIZUMAB
     Indication: Breast cancer recurrent
     Route: 042
     Dates: start: 20240227
  3. APATINIB [Suspect]
     Active Substance: APATINIB
     Indication: Breast cancer recurrent
     Route: 048
     Dates: start: 20240227, end: 20240318

REACTIONS (6)
  - Pyrexia [Unknown]
  - Dizziness [Unknown]
  - Headache [Unknown]
  - Gingival pain [Unknown]
  - Asthenia [Unknown]
  - Myelosuppression [Recovering/Resolving]

NARRATIVE: CASE EVENT DATE: 20240304
